FAERS Safety Report 5972681-2 (Version None)
Quarter: 2008Q4

REPORT INFORMATION
  Report Type: 
  Country: None (occurrence: None)
  Receive Date: 20081201
  Receipt Date: 20081118
  Transmission Date: 20090506
  Serious: Yes (Other)
  Sender: FDA-Public Use
  Company Number: US-CELGENEUS-163-20785-08110999

PATIENT
  Sex: Male

DRUGS (3)
  1. THALOMID [Suspect]
     Indication: MULTIPLE MYELOMA
     Route: 048
     Dates: start: 20040527
  2. THALOMID [Suspect]
     Route: 048
     Dates: start: 20040413, end: 20040501
  3. THALOMID [Suspect]
     Route: 048
     Dates: start: 20040320, end: 20040401

REACTIONS (1)
  - ILL-DEFINED DISORDER [None]
